FAERS Safety Report 20001456 (Version 4)
Quarter: 2022Q4

REPORT INFORMATION
  Report Type: Spontaneous
  Country: JP (occurrence: None)
  Receive Date: 20211027
  Receipt Date: 20221012
  Transmission Date: 20230113
  Serious: Yes (Hospitalization, Other)
  Sender: FDA-Public Use
  Company Number: 2021A782779

PATIENT
  Age: 73 Year
  Sex: Female
  Weight: 43 kg

DRUGS (13)
  1. LYNPARZA [Suspect]
     Active Substance: OLAPARIB
     Indication: Ovarian cancer
     Route: 048
     Dates: start: 20210820, end: 20210916
  2. AVASTIN [Suspect]
     Active Substance: BEVACIZUMAB
     Indication: Ovarian cancer
     Route: 041
     Dates: start: 20210401, end: 20210709
  3. AVASTIN [Suspect]
     Active Substance: BEVACIZUMAB
     Indication: Ovarian cancer
     Route: 041
     Dates: start: 20210820, end: 20210910
  4. AVASTIN [Suspect]
     Active Substance: BEVACIZUMAB
     Indication: Ovarian cancer
     Route: 041
     Dates: start: 20220119, end: 20220119
  5. AVASTIN [Suspect]
     Active Substance: BEVACIZUMAB
     Indication: Ovarian cancer
     Route: 041
     Dates: start: 20220209
  6. CARBOPLATIN [Suspect]
     Active Substance: CARBOPLATIN
     Indication: Ovarian cancer
     Route: 041
     Dates: start: 20210201, end: 20210226
  7. CARBOPLATIN [Suspect]
     Active Substance: CARBOPLATIN
     Indication: Ovarian cancer
     Route: 041
     Dates: start: 20210401, end: 20210709
  8. PACLITAXEL [Suspect]
     Active Substance: PACLITAXEL
     Indication: Ovarian cancer
     Route: 041
     Dates: start: 20210201, end: 20210226
  9. PACLITAXEL [Suspect]
     Active Substance: PACLITAXEL
     Indication: Ovarian cancer
     Route: 041
     Dates: start: 20210401, end: 20210709
  10. RABEPRAZOLE SODIUM [Suspect]
     Active Substance: RABEPRAZOLE SODIUM
     Route: 048
     Dates: start: 20210927, end: 20220623
  11. PREDNISOLONE [Suspect]
     Active Substance: PREDNISOLONE
     Route: 048
     Dates: start: 20210927
  12. PREDNISOLONE [Suspect]
     Active Substance: PREDNISOLONE
     Dosage: DOSE UNKNOWN
     Route: 048
     Dates: start: 20220623
  13. RISEDRONATE SODIUM [Suspect]
     Active Substance: RISEDRONATE SODIUM
     Route: 048
     Dates: start: 20210927, end: 20220623

REACTIONS (3)
  - Interstitial lung disease [Recovered/Resolved]
  - Thrombocytopenia [Recovered/Resolved]
  - Renal cyst [Unknown]

NARRATIVE: CASE EVENT DATE: 20210916
